FAERS Safety Report 6341573-1 (Version None)
Quarter: 2009Q3

REPORT INFORMATION
  Report Type: 
  Country: None (occurrence: None)
  Receive Date: 20090904
  Receipt Date: 20090717
  Transmission Date: 20100115
  Serious: Yes (Death, Hospitalization, Other)
  Sender: FDA-Public Use
  Company Number: US-BAYER-200920293NA

PATIENT
  Age: 71 Year
  Sex: Male

DRUGS (20)
  1. MAGNEVIST [Suspect]
     Indication: NUCLEAR MAGNETIC RESONANCE IMAGING BRAIN
     Dosage: TOTAL DAILY DOSE: 15 ML
     Dates: start: 20020425, end: 20020425
  2. OMNISCAN [Suspect]
     Indication: NUCLEAR MAGNETIC RESONANCE IMAGING
     Dates: start: 20030415, end: 20030415
  3. OMNISCAN [Suspect]
     Dates: start: 20040318, end: 20040318
  4. OMNISCAN [Suspect]
     Dates: start: 20040226, end: 20040226
  5. OMNISCAN [Suspect]
     Dates: start: 20040831, end: 20040831
  6. OPTIMARK [Suspect]
     Indication: NUCLEAR MAGNETIC RESONANCE IMAGING
  7. MULTIHANCE [Suspect]
     Indication: NUCLEAR MAGNETIC RESONANCE IMAGING
  8. PROHANCE [Suspect]
     Indication: NUCLEAR MAGNETIC RESONANCE IMAGING
  9. EPOGEN [Concomitant]
     Dosage: 15000 SQ
  10. ALLOPURINOL [Concomitant]
     Dosage: TOTAL DAILY DOSE: 100 MG
  11. ACYCLOVIR [Concomitant]
     Dosage: TOTAL DAILY DOSE: 200 MG
  12. TOPROL-XL [Concomitant]
     Dosage: TOTAL DAILY DOSE: 100 MG  UNIT DOSE: 50 MG
  13. NEPHROVITE [Concomitant]
  14. RENAGEL [Concomitant]
     Dosage: WITH MEALS
  15. PHOSLO [Concomitant]
     Dosage: WITH MEALS
  16. LIPITOR [Concomitant]
  17. CELLCEPT [Concomitant]
     Dosage: TOTAL DAILY DOSE: 1000 MG  UNIT DOSE: 500 MG
  18. PROTONIX [Concomitant]
     Dates: start: 20030401
  19. VIOXX [Concomitant]
  20. CYCLOSPORINE [Concomitant]

REACTIONS (31)
  - ARTHRALGIA [None]
  - BURNING SENSATION [None]
  - CALCINOSIS [None]
  - CARDIAC DISORDER [None]
  - CEREBRAL HAEMORRHAGE [None]
  - DEFORMITY [None]
  - ERYTHEMA [None]
  - EXTREMITY CONTRACTURE [None]
  - FALL [None]
  - GAIT DISTURBANCE [None]
  - HYPOAESTHESIA [None]
  - JOINT CONTRACTURE [None]
  - JOINT RANGE OF MOTION DECREASED [None]
  - JOINT STIFFNESS [None]
  - LETHARGY [None]
  - LUNG DISORDER [None]
  - MULTI-ORGAN DISORDER [None]
  - MUSCLE SPASMS [None]
  - MUSCULOSKELETAL STIFFNESS [None]
  - NEPHROGENIC SYSTEMIC FIBROSIS [None]
  - OEDEMA PERIPHERAL [None]
  - PAIN [None]
  - PAIN IN EXTREMITY [None]
  - PARAESTHESIA [None]
  - RASH [None]
  - SKIN HYPERTROPHY [None]
  - SKIN INDURATION [None]
  - SKIN SWELLING [None]
  - SKIN TIGHTNESS [None]
  - TENDON DISORDER [None]
  - TENDON PAIN [None]
